FAERS Safety Report 8113831-1 (Version None)
Quarter: 2012Q1

REPORT INFORMATION
  Report Type: 
  Country: None (occurrence: None)
  Receive Date: 20120203
  Receipt Date: 20120130
  Transmission Date: 20120608
  Serious: Yes (Hospitalization)
  Sender: FDA-Public Use
  Company Number: PHHO2011CZ020398

PATIENT
  Sex: Male
  Weight: 91.5 kg

DRUGS (6)
  1. BLINDED NO TREATMENT RECEIVED [Suspect]
     Dosage: DOUBLE BLINDED
     Dates: start: 20111206, end: 20111228
  2. BLINDED NO TREATMENT RECEIVED [Suspect]
     Indication: CHRONIC OBSTRUCTIVE PULMONARY DISEASE
     Dosage: DOUBLE BLINDED
     Dates: start: 20110629, end: 20111203
  3. BLINDED QVA149 [Suspect]
     Indication: CHRONIC OBSTRUCTIVE PULMONARY DISEASE
     Dosage: DOUBLE BLINDED
     Dates: start: 20110629, end: 20111203
  4. FLUTICASONE PROPIONATE/SALMETEROL [Suspect]
     Indication: CHRONIC OBSTRUCTIVE PULMONARY DISEASE
     Dosage: DOUBLE BLINDED
     Dates: start: 20110629, end: 20111203
  5. BLINDED QVA149 [Suspect]
     Dosage: DOUBLE BLINDED
     Dates: start: 20111206, end: 20111228
  6. FLUTICASONE PROPIONATE/SALMETEROL [Suspect]
     Dosage: DOUBLE BLINDED
     Dates: start: 20111206, end: 20111228

REACTIONS (4)
  - PULMONARY OEDEMA [None]
  - ATRIAL FIBRILLATION [None]
  - CEREBROVASCULAR ACCIDENT [None]
  - HYPERTENSIVE CRISIS [None]
